FAERS Safety Report 14878124 (Version 2)
Quarter: 2018Q3

REPORT INFORMATION
  Report Type: Spontaneous
  Country: ES (occurrence: ES)
  Receive Date: 20180510
  Receipt Date: 20180723
  Transmission Date: 20181010
  Serious: Yes (Hospitalization, Other)
  Sender: FDA-Public Use
  Company Number: ES-TEVA-2018-ES-891692

PATIENT
  Age: 83 Year
  Sex: Female

DRUGS (8)
  1. LEVOFLOXACINO (2791A) [Suspect]
     Active Substance: LEVOFLOXACIN
     Indication: RESPIRATORY TRACT INFECTION
     Dosage: 500 MILLIGRAM DAILY;
     Route: 048
     Dates: start: 201802, end: 20180218
  2. MANTINEX FLAS 20 MG TABLETS BUCODISPERSABLES EFG, 56 TABLETS [Concomitant]
     Dosage: 20 MILLIGRAM DAILY; MANTINEX FLAS 20 MG TABLETS BUCODISPERSABLES EFG, 56 TABLETS
     Route: 048
  3. SINTROM [Interacting]
     Active Substance: ACENOCOUMAROL
     Indication: THROMBOPHLEBITIS
     Dosage: SINTROM 4 MG TABLETS, 20 TABLETS
     Route: 048
     Dates: start: 201711, end: 20180220
  4. TRAMADOL + PARACETAMOL [Concomitant]
     Active Substance: ACETAMINOPHEN\TRAMADOL
     Route: 048
  5. ARTILOG 200 MG HARD CAPSULES, 100 CAPSULES [Concomitant]
     Dosage: 200 MILLIGRAM DAILY; ARTILOG 200 MG HARD CAPSULES, 100 CAPSULES
     Route: 048
  6. EPROSARTAN + HYDROCHLOROTHIAZIDE [Concomitant]
     Dosage: 1 DOSAGE FORMS DAILY;
     Route: 048
  7. DEPRAX 100 MG FILM?COATED TABLETS EFG, 30 TABLETS [Concomitant]
     Dosage: 100 MILLIGRAM DAILY; DEPRAX 100 MG FILM?COATED TABLETS EFG, 30 TABLETS
     Route: 048
  8. RISPERIDONA (7201A) [Concomitant]
     Active Substance: RISPERIDONE
     Dosage: .25 ML DAILY;
     Route: 048

REACTIONS (2)
  - Drug interaction [Unknown]
  - Rectal haemorrhage [Recovered/Resolved]

NARRATIVE: CASE EVENT DATE: 20180220
